FAERS Safety Report 12119929 (Version 2)
Quarter: 2016Q1

REPORT INFORMATION
  Report Type: Report from Study
  Country: JP (occurrence: JP)
  Receive Date: 20160226
  Receipt Date: 20160309
  Transmission Date: 20160526
  Serious: Yes (Hospitalization)
  Sender: FDA-Public Use
  Company Number: JP-JNJFOC-20160112318

PATIENT
  Age: 51 Year
  Sex: Male
  Weight: 72 kg

DRUGS (3)
  1. DEXAMETHASONE. [Concomitant]
     Active Substance: DEXAMETHASONE
     Route: 065
     Dates: start: 20160105
  2. YONDELIS [Suspect]
     Active Substance: TRABECTEDIN
     Indication: NEOPLASM MALIGNANT
     Dosage: CYCLE 1
     Route: 042
     Dates: start: 20160105
  3. YONDELIS [Suspect]
     Active Substance: TRABECTEDIN
     Indication: MALIGNANT MESENCHYMOMA
     Dosage: CYCLE 1
     Route: 042
     Dates: start: 20160105

REACTIONS (2)
  - Infusion site extravasation [Not Recovered/Not Resolved]
  - Infusion site necrosis [Not Recovered/Not Resolved]

NARRATIVE: CASE EVENT DATE: 20160109
